FAERS Safety Report 7090975-7 (Version None)
Quarter: 2010Q4

REPORT INFORMATION
  Report Type: 
  Country: None (occurrence: None)
  Receive Date: 20101012
  Receipt Date: 20090826
  Transmission Date: 20110411
  Serious: Yes (Other)
  Sender: FDA-Public Use
  Company Number: 1000006883

PATIENT
  Age: 52 Year
  Sex: Female

DRUGS (5)
  1. LEXAPRO [Suspect]
     Indication: ANXIETY
     Dosage: 10 MG (10 MG, 1 IN 1 D), ORAL
     Route: 048
     Dates: start: 20090611, end: 20090101
  2. LEXAPRO [Suspect]
     Indication: DEPRESSION
     Dosage: 10 MG (10 MG, 1 IN 1 D), ORAL
     Route: 048
     Dates: start: 20090611, end: 20090101
  3. VITAMIN TAB [Concomitant]
  4. CAPRYLIC ACID [Concomitant]
  5. HYALURONIC ACID [Concomitant]

REACTIONS (7)
  - DISTURBANCE IN ATTENTION [None]
  - FORMICATION [None]
  - MANIA [None]
  - PRURITUS [None]
  - SLEEP DISORDER [None]
  - SUICIDAL IDEATION [None]
  - VISUAL IMPAIRMENT [None]
